FAERS Safety Report 15288295 (Version 1)
Quarter: 2018Q3

REPORT INFORMATION
  Report Type: Spontaneous
  Country: US (occurrence: US)
  Receive Date: 20180802
  Receipt Date: 20180802
  Transmission Date: 20181010
  Serious: Yes (Other)
  Sender: FDA-Public Use
  Company Number: None

PATIENT
  Age: 34 Year
  Sex: Male
  Weight: 67.5 kg

DRUGS (2)
  1. ATOVAQUONE AND PROGUANIL HYDROCHLORIDE TABLETS 250MG / 100 MG [Suspect]
     Active Substance: ATOVAQUONE\PROGUANIL HYDROCHLORIDE
     Indication: DRUG THERAPY
     Dosage: ?          QUANTITY:1 TABLET(S);?
     Route: 048
     Dates: start: 20180713, end: 20180727
  2. TYPHOID [Concomitant]
     Active Substance: TYPHOID VACCINE

REACTIONS (4)
  - Abnormal dreams [None]
  - Anosmia [None]
  - Mouth ulceration [None]
  - Ageusia [None]

NARRATIVE: CASE EVENT DATE: 20180731
